FAERS Safety Report 14498513 (Version 1)
Quarter: 2018Q1

REPORT INFORMATION
  Report Type: Spontaneous
  Country: US (occurrence: US)
  Receive Date: 20180207
  Receipt Date: 20180207
  Transmission Date: 20180509
  Serious: No
  Sender: FDA-Public Use
  Company Number: US-EGALET US INC-US-2017EGA001166

PATIENT

DRUGS (1)
  1. ARYMO ER [Suspect]
     Active Substance: MORPHINE SULFATE
     Indication: PRODUCT USED FOR UNKNOWN INDICATION
     Dosage: 30 MG, THREE DAYS
     Route: 048

REACTIONS (1)
  - Drug ineffective [Unknown]
